FAERS Safety Report 9255476 (Version 2)
Quarter: 2013Q2

REPORT INFORMATION
  Report Type: Report from Study
  Country: BR (occurrence: BR)
  Receive Date: 20130425
  Receipt Date: 20130527
  Transmission Date: 20140414
  Serious: Yes (Other)
  Sender: FDA-Public Use
  Company Number: PHHY2013BR040896

PATIENT
  Age: 66 Year
  Sex: Female
  Weight: 56 kg

DRUGS (5)
  1. ACLASTA [Suspect]
     Indication: OSTEOPOROSIS
     Dosage: 5 MG, YEARLY
     Route: 042
     Dates: start: 20130412
  2. DIOVAN [Concomitant]
     Indication: HYPERTENSION
     Dosage: 160 MG, 1 TABLET DAILY
     Route: 048
  3. PANCREATIN [Concomitant]
     Dosage: 2 DF, 2 CAPSULES  (5000 UI ) BID
  4. PANTOPRAZOLE [Concomitant]
     Indication: GASTRITIS
     Dosage: 40 MG, DAILY
     Route: 048
  5. CALCIUM + VITAMIN D                /01483701/ [Concomitant]
     Indication: OSTEOPOROSIS
     Dosage: 1 DF, DAILY
     Route: 048

REACTIONS (4)
  - Neoplasm [Not Recovered/Not Resolved]
  - Eye haemorrhage [Recovered/Resolved]
  - Feeling hot [Recovered/Resolved]
  - Chills [Recovered/Resolved]
